FAERS Safety Report 8225444-1 (Version None)
Quarter: 2012Q1

REPORT INFORMATION
  Report Type: 
  Country: None (occurrence: None)
  Receive Date: 20120321
  Receipt Date: 20120319
  Transmission Date: 20120608
  Serious: Yes (Death)
  Sender: FDA-Public Use
  Company Number: GB-ABBOTT-12P-167-0916660-00

PATIENT
  Sex: Female

DRUGS (1)
  1. HUMIRA [Suspect]
     Indication: RHEUMATOID ARTHRITIS
     Route: 058
     Dates: start: 20051221, end: 20080615

REACTIONS (5)
  - AORTIC ANEURYSM [None]
  - PNEUMONIA [None]
  - MYOCARDIAL ISCHAEMIA [None]
  - CARDIAC FAILURE [None]
  - ARTERIOSCLEROSIS [None]
